FAERS Safety Report 10410838 (Version 2)
Quarter: 2014Q3

REPORT INFORMATION
  Report Type: Spontaneous
  Country: US (occurrence: US)
  Receive Date: 20140826
  Receipt Date: 20140826
  Transmission Date: 20150326
  Serious: No
  Sender: FDA-Public Use
  Company Number: US-BRISTOL-MYERS SQUIBB COMPANY-20545463

PATIENT
  Sex: Male

DRUGS (1)
  1. KENALOG-10 [Suspect]
     Active Substance: TRIAMCINOLONE ACETONIDE
     Indication: SKIN MASS
     Dates: start: 20140217

REACTIONS (4)
  - Insomnia [Unknown]
  - Injection site atrophy [Unknown]
  - Nightmare [Unknown]
  - Skin discolouration [Unknown]
